FAERS Safety Report 11101228 (Version 2)
Quarter: 2015Q4

REPORT INFORMATION
  Report Type: Spontaneous
  Country: US (occurrence: US)
  Receive Date: 20150508
  Receipt Date: 20151016
  Transmission Date: 20160304
  Serious: Yes (Hospitalization, Disabling)
  Sender: FDA-Public Use
  Company Number: US-ENDO PHARMACEUTICALS INC.-201408002

PATIENT
  Age: 69 Year
  Sex: Male
  Weight: 102.15 kg

DRUGS (8)
  1. AMLODIPINE BESYLATE. [Concomitant]
     Active Substance: AMLODIPINE BESYLATE
     Indication: PRODUCT USED FOR UNKNOWN INDICATION
     Route: 065
  2. BUPROPION. [Concomitant]
     Active Substance: BUPROPION
     Indication: PRODUCT USED FOR UNKNOWN INDICATION
     Route: 065
  3. ANDROGEL [Suspect]
     Active Substance: TESTOSTERONE
     Indication: ANDROGEN REPLACEMENT THERAPY
     Dosage: USED ^AS PRESCRIBED^
     Route: 061
     Dates: start: 2010, end: 2012
  4. VIAGRA [Concomitant]
     Active Substance: SILDENAFIL CITRATE
     Indication: PRODUCT USED FOR UNKNOWN INDICATION
     Route: 065
     Dates: start: 2005
  5. TESTOPEL [Suspect]
     Active Substance: TESTOSTERONE
     Indication: ANDROGEN REPLACEMENT THERAPY
     Dosage: USED ^AS PRESCRIBED^
     Route: 058
     Dates: start: 2012
  6. CARVEDILOL. [Concomitant]
     Active Substance: CARVEDILOL
     Indication: PRODUCT USED FOR UNKNOWN INDICATION
     Route: 065
  7. NIACIN. [Concomitant]
     Active Substance: NIACIN
     Indication: PRODUCT USED FOR UNKNOWN INDICATION
     Route: 065
  8. VITAMIN E [Concomitant]
     Active Substance: .ALPHA.-TOCOPHEROL
     Indication: PRODUCT USED FOR UNKNOWN INDICATION
     Route: 065

REACTIONS (24)
  - Vascular graft [Not Recovered/Not Resolved]
  - Hyperglycaemia [Recovered/Resolved]
  - Lymphadenopathy [Unknown]
  - Dyspnoea paroxysmal nocturnal [Unknown]
  - Haemothorax [Unknown]
  - Acquired diaphragmatic eventration [Unknown]
  - Haemothorax [Recovering/Resolving]
  - Angina pectoris [Unknown]
  - Vascular injury [Not Recovered/Not Resolved]
  - Haemorrhagic anaemia [Unknown]
  - Renal cyst [Unknown]
  - Coronary artery disease [Unknown]
  - Myocardial infarction [Unknown]
  - Diverticulum [Unknown]
  - Goitre [Unknown]
  - Pain [Unknown]
  - Orthopnoea [Unknown]
  - Pneumothorax [Unknown]
  - Knee operation [Unknown]
  - Anxiety [Unknown]
  - Hypotension [Recovered/Resolved]
  - Pleural effusion [Unknown]
  - Atelectasis [Unknown]
  - Quality of life decreased [Unknown]

NARRATIVE: CASE EVENT DATE: 2011
